FAERS Safety Report 7574825-8 (Version None)
Quarter: 2011Q2

REPORT INFORMATION
  Report Type: 
  Country: None (occurrence: None)
  Receive Date: 20110627
  Receipt Date: 20110505
  Transmission Date: 20111010
  Serious: Yes (Hospitalization)
  Sender: FDA-Public Use
  Company Number: US-BAYER-201026340NA

PATIENT
  Age: 31 Year
  Sex: Female
  Weight: 110.66 kg

DRUGS (4)
  1. YASMIN [Suspect]
     Indication: CONTRACEPTION
     Dosage: ONE DAILY
     Route: 048
     Dates: start: 20060130, end: 20060813
  2. LEXAPRO [Concomitant]
     Dosage: 10 MG, QD
     Route: 048
  3. ALBUTEROL SULFATE AUTOHALER [Concomitant]
     Dosage: UNK UNK, PRN
     Route: 055
  4. TOPAMAX [Concomitant]
     Dosage: 75 MG AT HOUR OF SLEEP
     Route: 048

REACTIONS (7)
  - CHOLELITHIASIS [None]
  - PLEURITIC PAIN [None]
  - CHOLECYSTITIS CHRONIC [None]
  - CHOLESTEROSIS [None]
  - PULMONARY EMBOLISM [None]
  - RECTAL HAEMORRHAGE [None]
  - CHOLECYSTITIS ACUTE [None]
